FAERS Safety Report 25318960 (Version 1)
Quarter: 2025Q2

REPORT INFORMATION
  Report Type: Spontaneous
  Country: FR (occurrence: FR)
  Receive Date: 20250515
  Receipt Date: 20250515
  Transmission Date: 20250716
  Serious: Yes (Life-Threatening, Other)
  Sender: RECKITT BENCKISER
  Company Number: None

PATIENT

DRUGS (3)
  1. SUBUTEX [Suspect]
     Active Substance: BUPRENORPHINE HYDROCHLORIDE
     Indication: Product used for unknown indication
     Route: 060
  2. LYRICA [Suspect]
     Active Substance: PREGABALIN
     Indication: Product used for unknown indication
     Route: 048
  3. RIVOTRIL [Suspect]
     Active Substance: CLONAZEPAM
     Indication: Product used for unknown indication
     Route: 048

REACTIONS (9)
  - Intentional self-injury [Recovering/Resolving]
  - Toxicity to various agents [Recovering/Resolving]
  - Feeding disorder [Recovering/Resolving]
  - Vomiting [Recovering/Resolving]
  - Constipation [Recovering/Resolving]
  - Feeling cold [Recovering/Resolving]
  - Drug withdrawal syndrome [Recovering/Resolving]
  - Intentional product misuse [Recovering/Resolving]
  - Drug dependence [Recovering/Resolving]
